FAERS Safety Report 17677462 (Version 1)
Quarter: 2020Q2

REPORT INFORMATION
  Report Type: Spontaneous
  Country: US (occurrence: US)
  Receive Date: 20200416
  Receipt Date: 20200416
  Transmission Date: 20200714
  Serious: Yes (Hospitalization)
  Sender: FDA-Public Use
  Company Number: US-JNJFOC-20200413845

PATIENT
  Age: 66 Year
  Sex: Male
  Weight: 100.33 kg

DRUGS (1)
  1. INVOKANA [Suspect]
     Active Substance: CANAGLIFLOZIN
     Indication: TYPE 2 DIABETES MELLITUS
     Route: 048

REACTIONS (5)
  - Diabetic foot [Recovering/Resolving]
  - Osteomyelitis acute [Unknown]
  - Amputation [Recovering/Resolving]
  - Treatment noncompliance [Unknown]
  - Diabetic gangrene [Recovering/Resolving]

NARRATIVE: CASE EVENT DATE: 20170516
